FAERS Safety Report 17778255 (Version 1)
Quarter: 2020Q2

REPORT INFORMATION
  Report Type: Spontaneous
  Country: TR (occurrence: TR)
  Receive Date: 20200513
  Receipt Date: 20200513
  Transmission Date: 20200714
  Serious: Yes (Other)
  Sender: FDA-Public Use
  Company Number: TR-SCIEGEN-2020SCILIT00104

PATIENT
  Age: 56 Year
  Sex: Female

DRUGS (2)
  1. PRAMIPEXOLE DIHYDROCHLORIDE TABLETS [Suspect]
     Active Substance: PRAMIPEXOLE DIHYDROCHLORIDE
     Indication: PARKINSON^S DISEASE
     Route: 065
  2. RASAGILINE. [Concomitant]
     Active Substance: RASAGILINE
     Route: 065

REACTIONS (1)
  - Hallucination, olfactory [Recovered/Resolved]
